FAERS Safety Report 24835283 (Version 3)
Quarter: 2025Q1

REPORT INFORMATION
  Report Type: Spontaneous
  Country: IL (occurrence: IL)
  Receive Date: 20250113
  Receipt Date: 20250116
  Transmission Date: 20250409
  Serious: Yes (Hospitalization)
  Sender: RHYTHM PHARMACEUTICALS, INC.
  Company Number: IL-PPDUS-2025RHM000003

PATIENT
  Age: 10 Year
  Sex: Female

DRUGS (2)
  1. IMCIVREE [Suspect]
     Active Substance: SETMELANOTIDE
     Indication: Laurence-Moon-Bardet-Biedl syndrome
     Route: 065
     Dates: start: 20241204
  2. IMCIVREE [Suspect]
     Active Substance: SETMELANOTIDE
     Route: 065

REACTIONS (5)
  - Dehydration [Not Recovered/Not Resolved]
  - Decreased appetite [Not Recovered/Not Resolved]
  - Blood potassium decreased [Not Recovered/Not Resolved]
  - Therapy interrupted [Recovered/Resolved]
  - Skin hyperpigmentation [Not Recovered/Not Resolved]

NARRATIVE: CASE EVENT DATE: 20241224
